FAERS Safety Report 16987003 (Version 1)
Quarter: 2019Q4

REPORT INFORMATION
  Report Type: Spontaneous
  Country: GB (occurrence: GB)
  Receive Date: 20191102
  Receipt Date: 20191102
  Transmission Date: 20200122
  Serious: Yes (Other)
  Sender: FDA-Public Use
  Company Number: GB-TEVA-2019-GB-1130400

PATIENT
  Age: 51 Year
  Sex: Male
  Weight: 76 kg

DRUGS (9)
  1. AMLODIPINE [Concomitant]
     Active Substance: AMLODIPINE BESYLATE
     Dosage: 5 MG 1 DAYS
     Dates: start: 20170314
  2. CANDESARTAN. [Concomitant]
     Active Substance: CANDESARTAN
     Dosage: 4 MG 1 DAYS
     Dates: start: 20180507
  3. ATORVASTATIN [Suspect]
     Active Substance: ATORVASTATIN
     Indication: PROPHYLAXIS
     Dosage: 40 MG 1 DAYS
     Dates: start: 20170310, end: 20180603
  4. LANSOPRAZOLE. [Concomitant]
     Active Substance: LANSOPRAZOLE
     Dosage: 30 MG 1 DAYS
     Dates: start: 20170314
  5. ACETYLSALICYLIC ACID [Concomitant]
     Active Substance: ASPIRIN
     Dosage: 75 MG 1 DAYS
     Dates: start: 20170314
  6. CLOPIDOGREL [Concomitant]
     Active Substance: CLOPIDOGREL BISULFATE
     Dosage: 75 MG
     Dates: start: 20170314
  7. RAMIPRIL. [Suspect]
     Active Substance: RAMIPRIL
     Indication: HYPERTENSION
     Dosage: 10 MG 1 DAYS
     Dates: start: 20170314, end: 2018
  8. BISOPROLOL [Concomitant]
     Active Substance: BISOPROLOL
     Dosage: 2.5 MG
     Dates: start: 20170314, end: 20180428
  9. CETIRIZINE [Concomitant]
     Active Substance: CETIRIZINE HYDROCHLORIDE
     Indication: PERIORBITAL OEDEMA
     Dates: start: 20170620

REACTIONS (17)
  - Peripheral swelling [Not Recovered/Not Resolved]
  - Periorbital discomfort [Unknown]
  - Musculoskeletal pain [Unknown]
  - Chromaturia [Unknown]
  - Myalgia [Recovering/Resolving]
  - Tendon pain [Recovering/Resolving]
  - Pruritus [Unknown]
  - Muscle fatigue [Unknown]
  - Synovial cyst [Unknown]
  - Malaise [Unknown]
  - Sleep disorder [Unknown]
  - Burning sensation [Unknown]
  - Pain in extremity [Recovering/Resolving]
  - Bursitis [Recovering/Resolving]
  - Joint swelling [Unknown]
  - Palmar fasciitis [Unknown]
  - Angioedema [Recovered/Resolved]

NARRATIVE: CASE EVENT DATE: 20170617
